FAERS Safety Report 20087696 (Version 2)
Quarter: 2021Q4

REPORT INFORMATION
  Report Type: Report from Study
  Country: CO (occurrence: CO)
  Receive Date: 20211118
  Receipt Date: 20211230
  Transmission Date: 20220303
  Serious: Yes (Other)
  Sender: FDA-Public Use
  Company Number: CO-ABBVIE-21K-036-4167443-00

PATIENT
  Sex: Female
  Weight: 64 kg

DRUGS (2)
  1. HUMIRA [Suspect]
     Active Substance: ADALIMUMAB
     Indication: Ankylosing spondylitis
     Route: 058
     Dates: start: 20180912, end: 20211029
  2. HUMIRA [Suspect]
     Active Substance: ADALIMUMAB
     Route: 058
     Dates: start: 2021

REACTIONS (19)
  - Colon dysplasia [Recovering/Resolving]
  - Intestinal polyp [Recovered/Resolved]
  - Epicondylitis [Not Recovered/Not Resolved]
  - Constipation [Recovered/Resolved]
  - Gastritis [Recovering/Resolving]
  - Immune system disorder [Recovering/Resolving]
  - Abdominal distension [Recovered/Resolved]
  - Arthritis [Not Recovered/Not Resolved]
  - Ankylosing spondylitis [Recovering/Resolving]
  - Back pain [Recovering/Resolving]
  - Helicobacter infection [Recovered/Resolved]
  - Helicobacter infection [Recovering/Resolving]
  - Diverticulitis [Recovering/Resolving]
  - Abdominal discomfort [Recovered/Resolved]
  - Discouragement [Recovering/Resolving]
  - Malaise [Recovering/Resolving]
  - Musculoskeletal disorder [Not Recovered/Not Resolved]
  - Fluid retention [Not Recovered/Not Resolved]
  - Tonsillitis [Recovering/Resolving]

NARRATIVE: CASE EVENT DATE: 20190101
